FAERS Safety Report 7543444-1 (Version None)
Quarter: 2011Q2

REPORT INFORMATION
  Report Type: 
  Country: None (occurrence: None)
  Receive Date: 20110613
  Receipt Date: 20110607
  Transmission Date: 20111010
  Serious: Yes (Hospitalization)
  Sender: FDA-Public Use
  Company Number: US-PFIZER INC-2007097313

PATIENT
  Sex: Female
  Weight: 65.76 kg

DRUGS (32)
  1. BUSPIRONE HCL [Concomitant]
  2. PROMETHAZINE [Concomitant]
  3. VYTORIN [Concomitant]
  4. ASPIRIN [Concomitant]
     Indication: ARTERIAL OCCLUSIVE DISEASE
     Dosage: 325 MG, 1X/DAY
     Route: 048
  5. GABAPENTIN [Concomitant]
     Dosage: 600 MG, 4X/DAY
     Route: 048
  6. SIMVASTATIN [Concomitant]
     Dosage: 80 MG, 1X/DAY
     Route: 048
  7. DEPAKOTE [Concomitant]
  8. LASIX [Concomitant]
  9. RANITIDINE [Concomitant]
     Dosage: 300 MG, 1X/DAY
     Route: 048
  10. ROBAXIN [Concomitant]
     Dosage: UNK
  11. FLUOXETINE HCL [Concomitant]
  12. CELEXA [Concomitant]
     Dosage: 60 MG, 1X/DAY
     Route: 048
  13. ZONISAMIDE [Concomitant]
     Dosage: 100 MG, 2 TO 3 TIMES DAILY
     Route: 048
  14. CALCIUM WITH VITAMIN D [Concomitant]
     Dosage: 500 MG, 1X/DAY
     Route: 048
  15. CHANTIX [Suspect]
     Dosage: 0.5 MG, 1X/DAY
     Route: 048
     Dates: start: 20070101, end: 20070101
  16. CHANTIX [Suspect]
     Dosage: 0.5 MG, 2X/DAY
     Route: 048
     Dates: start: 20070101, end: 20070101
  17. CHANTIX [Suspect]
     Dosage: 1 MG, 1X/DAY
     Route: 048
     Dates: start: 20070101, end: 20070101
  18. TRAZODONE HCL [Concomitant]
  19. VITAMIN D [Concomitant]
     Dosage: 50000 IU, WEEKLY
     Route: 048
  20. MONTELUKAST SODIUM [Concomitant]
     Dosage: 10 MG, 1X/DAY
     Route: 048
  21. ZETIA [Concomitant]
     Dosage: 10 MG, 1X/DAY
     Route: 048
  22. CHANTIX [Suspect]
     Dosage: UNK
     Dates: start: 20081101, end: 20090101
  23. METOCLOPRAMIDE [Concomitant]
  24. LORTAB [Concomitant]
  25. FLUDROCORTISONE ACETATE [Concomitant]
  26. REQUIP [Concomitant]
     Dosage: 0.25 MG, 1X/DAY
     Route: 048
  27. METOPROLOL SUCCINATE [Concomitant]
  28. PHENYTOIN [Concomitant]
  29. LAMICTAL [Concomitant]
  30. PLAVIX [Concomitant]
     Indication: ARTERIAL OCCLUSIVE DISEASE
     Dosage: 75 MG, 1X/DAY
     Route: 048
  31. DIAZEPAM [Concomitant]
     Dosage: 10 MG, 1X/DAY
     Route: 048
  32. POTASSIUM [Concomitant]
     Dosage: 20 MG, 1X/DAY
     Route: 048

REACTIONS (2)
  - RENAL CANCER [None]
  - DIZZINESS [None]
